FAERS Safety Report 16897770 (Version 1)
Quarter: 2019Q4

REPORT INFORMATION
  Report Type: Spontaneous
  Country: GB (occurrence: GB)
  Receive Date: 20191009
  Receipt Date: 20191009
  Transmission Date: 20200122
  Serious: Yes (Other)
  Sender: FDA-Public Use
  Company Number: GB-TEVA-2019-GB-1118248

PATIENT
  Age: 47 Year
  Sex: Female
  Weight: 70 kg

DRUGS (2)
  1. ANASTROZOLE. [Concomitant]
     Active Substance: ANASTROZOLE
  2. VENLAFAXINE [Suspect]
     Active Substance: VENLAFAXINE HYDROCHLORIDE
     Indication: HOT FLUSH
     Dosage: 37.5 MG
     Route: 048
     Dates: start: 20190913, end: 20190913

REACTIONS (11)
  - Lethargy [Unknown]
  - Dizziness [Unknown]
  - Malaise [Unknown]
  - Tachycardia [Unknown]
  - Tremor [Unknown]
  - Syncope [Unknown]
  - Feeling jittery [Unknown]
  - Nausea [Unknown]
  - Dystonia [Recovered/Resolved with Sequelae]
  - Dysarthria [Unknown]
  - Flushing [Unknown]

NARRATIVE: CASE EVENT DATE: 20190913
